FAERS Safety Report 14009264 (Version 1)
Quarter: 2017Q3

REPORT INFORMATION
  Report Type: Spontaneous
  Country: JP (occurrence: JP)
  Receive Date: 20170925
  Receipt Date: 20170925
  Transmission Date: 20171128
  Serious: Yes (Other)
  Sender: FDA-Public Use
  Company Number: JP-PFIZER INC-2017407265

PATIENT
  Age: 73 Year
  Sex: Female

DRUGS (1)
  1. ZITHROMAC [Suspect]
     Active Substance: AZITHROMYCIN DIHYDRATE
     Dosage: UNK
     Route: 041
     Dates: start: 201709, end: 201709

REACTIONS (4)
  - Skin necrosis [Unknown]
  - Skin ulcer [Unknown]
  - Infusion site extravasation [Unknown]
  - Blister [Unknown]

NARRATIVE: CASE EVENT DATE: 201709
